FAERS Safety Report 5056482-8 (Version None)
Quarter: 2006Q2

REPORT INFORMATION
  Report Type: 
  Country: None (occurrence: None)
  Receive Date: 20060616
  Receipt Date: 20060212
  Transmission Date: 20061013
  Serious: Yes (Hospitalization)
  Sender: FDA-Public Use
  Company Number: 200611592US

PATIENT
  Age: 12 Year
  Sex: Female

DRUGS (1)
  1. LANTUS [Suspect]
     Dosage: 1500 U ONCE IM
     Route: 030
     Dates: start: 20060201, end: 20060201

REACTIONS (1)
  - HYPOGLYCAEMIA [None]
